FAERS Safety Report 11295099 (Version 1)
Quarter: 2015Q3

REPORT INFORMATION
  Report Type: Spontaneous
  Country: US (occurrence: None)
  Receive Date: 20150722
  Receipt Date: 20150722
  Transmission Date: 20151125
  Serious: No
  Sender: FDA-Public Use
  Company Number: None

PATIENT
  Age: 70 Year
  Sex: Male
  Weight: 70.31 kg

DRUGS (4)
  1. KEPPRA [Concomitant]
     Active Substance: LEVETIRACETAM
  2. KEPPRA [Suspect]
     Active Substance: LEVETIRACETAM
     Indication: CEREBROVASCULAR ACCIDENT
     Route: 048
     Dates: start: 20150712, end: 20150719
  3. KEPPRA [Suspect]
     Active Substance: LEVETIRACETAM
     Indication: SEIZURE
     Route: 048
     Dates: start: 20150712, end: 20150719
  4. AGGENOX [Concomitant]

REACTIONS (7)
  - Coordination abnormal [None]
  - Gait disturbance [None]
  - Decreased appetite [None]
  - Product quality issue [None]
  - Fatigue [None]
  - Irritability [None]
  - Product substitution issue [None]

NARRATIVE: CASE EVENT DATE: 20150712
